FAERS Safety Report 7120896-2 (Version None)
Quarter: 2010Q4

REPORT INFORMATION
  Report Type: 
  Country: None (occurrence: None)
  Receive Date: 20101124
  Receipt Date: 20101112
  Transmission Date: 20110411
  Serious: Yes (Other)
  Sender: FDA-Public Use
  Company Number: DE-JNJFOC-20101104034

PATIENT
  Sex: Female
  Weight: 100 kg

DRUGS (12)
  1. PALEXIA RETARD [Suspect]
     Indication: PRODUCT USED FOR UNKNOWN INDICATION
     Route: 048
  2. ARCOXIA [Concomitant]
     Route: 065
  3. LYRICA [Concomitant]
     Route: 065
  4. KATADOLON [Concomitant]
     Route: 065
  5. METFORMIN HCL [Concomitant]
     Route: 065
  6. GLYBURIDE [Concomitant]
     Route: 065
  7. NITRENDIPINE [Concomitant]
     Route: 065
  8. ACCUZIDE [Concomitant]
     Route: 065
  9. GLUCOBAY [Concomitant]
     Route: 065
  10. TORASEMID [Concomitant]
     Route: 065
  11. JANUVIA [Concomitant]
     Route: 065
  12. FENTANYL [Concomitant]

REACTIONS (4)
  - BLOOD GLUCOSE INCREASED [None]
  - DEHYDRATION [None]
  - DIARRHOEA [None]
  - RENAL FAILURE ACUTE [None]
